FAERS Safety Report 23675280 (Version 1)
Quarter: 2024Q1

REPORT INFORMATION
  Report Type: Spontaneous
  Country: CN (occurrence: CN)
  Receive Date: 20240327
  Receipt Date: 20240327
  Transmission Date: 20240410
  Serious: Yes (Other)
  Sender: FDA-Public Use
  Company Number: CN-Reliance-000386

PATIENT

DRUGS (3)
  1. CAPECITABINE [Suspect]
     Active Substance: CAPECITABINE
     Indication: Colorectal cancer
     Dosage: 1.5 G ORALLY TWICE DAILY ON DAYS 1 - 14
     Route: 048
  2. OXALIPLATIN [Suspect]
     Active Substance: OXALIPLATIN
     Indication: Colorectal cancer
     Dosage: 6 CYCLES (190 MG ON DAY 1)
  3. GRANULOCYTE COLONY STIMULATING FACT [Concomitant]

REACTIONS (1)
  - Acute myeloid leukaemia [Unknown]
